FAERS Safety Report 12682896 (Version 2)
Quarter: 2016Q3

REPORT INFORMATION
  Report Type: Spontaneous
  Country: GB (occurrence: GB)
  Receive Date: 20160825
  Receipt Date: 20160825
  Transmission Date: 20161109
  Serious: Yes (Hospitalization)
  Sender: FDA-Public Use
  Company Number: GB-CIPLA LTD.-2016GB17697

PATIENT

DRUGS (8)
  1. ECSTASY [Concomitant]
     Active Substance: METHYLENEDIOXYMETHAMPHETAMINE
     Dosage: UNK
     Route: 065
  2. MUSHROOM TEA (PSILOCYBINE) [Suspect]
     Active Substance: PSILOCYBINE
     Dosage: SACHET OF MUSHROOM TEA(1.5 G); APPROXIMATELY 300 ML WERE INGESTED AND REMAINING CONTENTS WERE CHEWED
     Route: 065
  3. METHYLPHENIDATE. [Concomitant]
     Active Substance: METHYLPHENIDATE
     Dosage: EVERY FEW WEEKS FOR THE LAST THREE MONTHS
     Route: 065
  4. LYSERGIC ACID DIETHYLAMIDE [Suspect]
     Active Substance: LYSERGIDE
     Dosage: TWO LSD BLOTTERS (UNKNOWN WEIGHT) AS BLOTTER
     Route: 060
  5. CITALOPRAM [Suspect]
     Active Substance: CITALOPRAM HYDROBROMIDE
     Indication: DEPRESSION
     Dosage: UNK
     Route: 065
  6. FLUOXETINE [Suspect]
     Active Substance: FLUOXETINE HYDROCHLORIDE
     Indication: DEPRESSION
     Dosage: UNK
     Route: 065
  7. CANNABIS TEA [Suspect]
     Active Substance: CANNABIS SATIVA SUBSP. INDICA TOP
     Dosage: A SACHET OF CANNABIS TEA (1.5 G) WAS SMOKED
     Route: 065
  8. COCAINE [Concomitant]
     Active Substance: COCAINE
     Dosage: INFREQUENT COCAINE USE
     Route: 065

REACTIONS (7)
  - Coma scale abnormal [Recovered/Resolved]
  - Toxicity to various agents [Recovered/Resolved]
  - Clonus [Recovered/Resolved]
  - Sinus tachycardia [Recovered/Resolved]
  - Respiratory acidosis [Recovered/Resolved]
  - Tonic convulsion [Recovered/Resolved]
  - Hallucination, visual [Recovered/Resolved]
